FAERS Safety Report 9704494 (Version 3)
Quarter: 2013Q4

REPORT INFORMATION
  Report Type: Spontaneous
  Country: US (occurrence: US)
  Receive Date: 20131122
  Receipt Date: 20131209
  Transmission Date: 20140711
  Serious: No
  Sender: FDA-Public Use
  Company Number: US-PFIZER INC-2013333909

PATIENT
  Age: 60 Year
  Sex: Female
  Weight: 63.49 kg

DRUGS (4)
  1. PREMARIN [Suspect]
     Indication: VULVOVAGINAL DRYNESS
     Dosage: UNK
     Route: 067
     Dates: start: 2011
  2. PREMARIN [Suspect]
     Indication: NIGHT SWEATS
  3. ESTRING [Suspect]
     Indication: VULVOVAGINAL DRYNESS
     Dosage: UNK
     Route: 067
     Dates: start: 20131007, end: 20131114
  4. ESTRING [Suspect]
     Indication: NIGHT SWEATS

REACTIONS (3)
  - Vulvovaginal mycotic infection [Recovered/Resolved]
  - Pruritus [Unknown]
  - Drug ineffective [Unknown]
